FAERS Safety Report 23847816 (Version 1)
Quarter: 2024Q2

REPORT INFORMATION
  Report Type: Spontaneous
  Country: US (occurrence: US)
  Receive Date: 20240513
  Receipt Date: 20240513
  Transmission Date: 20240716
  Serious: No
  Sender: FDA-Public Use
  Company Number: US-CIPLA LTD.-2023US03854

PATIENT

DRUGS (10)
  1. ALBUTEROL [Suspect]
     Active Substance: ALBUTEROL
     Indication: Asthma
     Dosage: ONE PUFF (90 MCG) NORMALLY
     Route: 065
     Dates: start: 20230702
  2. ALBUTEROL [Suspect]
     Active Substance: ALBUTEROL
     Dosage: TWO (180 MCG) AT MOST NEEDED
     Route: 065
     Dates: start: 20230702
  3. LOSARTAN [Concomitant]
     Active Substance: LOSARTAN
     Indication: Product used for unknown indication
     Dosage: UNK / ONCE IN THE MORNING, 50 YEARS AGO
     Route: 065
  4. SIMVASTATIN [Concomitant]
     Active Substance: SIMVASTATIN
     Indication: Product used for unknown indication
     Dosage: UNK, ONCE IN THE MORNING.
     Route: 065
  5. ALLOPURINOL [Concomitant]
     Active Substance: ALLOPURINOL
     Indication: Gout
     Dosage: 300 MILLIGRAM, ONE TABLET PER DAY
     Route: 065
  6. MONTELUKAST [Concomitant]
     Active Substance: MONTELUKAST SODIUM
     Indication: Asthma
     Dosage: 10 MILLIGRAM, ONCE PER DAY
     Route: 065
  7. METFORMIN [Concomitant]
     Active Substance: METFORMIN HYDROCHLORIDE
     Indication: Diabetes mellitus
     Dosage: 500 MILLIGRAM, 2 TABLETS PER DAY (ONE IN THE MORNING AND ONE IN THE NIGHT)
     Route: 065
  8. DULERA [Concomitant]
     Active Substance: FORMOTEROL FUMARATE DIHYDRATE\MOMETASONE FUROATE
     Indication: Asthma
     Dosage: UNK / ONE PUFF NORMALLY
     Route: 065
  9. DULERA [Concomitant]
     Active Substance: FORMOTEROL FUMARATE DIHYDRATE\MOMETASONE FUROATE
     Dosage: UNK, TWO AT MOST
     Route: 065
  10. CENTRUM SILVER [ASCORBIC ACID;BETACAROTENE;BIOTIN;CALCIUM PHOSPHATE;CH [Concomitant]
     Indication: Vitamin supplementation
     Dosage: UNK / ONCE PER DAY, STARTED WHEN THE PATIENT WAS 50 YEARS OLD
     Route: 065

REACTIONS (8)
  - Dyspnoea [Recovered/Resolved]
  - Asthma [Recovered/Resolved]
  - Device delivery system issue [Unknown]
  - Product container seal issue [Unknown]
  - Device mechanical issue [Unknown]
  - Product cleaning inadequate [Unknown]
  - Device issue [Unknown]
  - Device malfunction [Unknown]

NARRATIVE: CASE EVENT DATE: 20230702
